FAERS Safety Report 10297385 (Version 1)
Quarter: 2014Q3

REPORT INFORMATION
  Report Type: Report from Study
  Country: BR (occurrence: BR)
  Receive Date: 20140711
  Receipt Date: 20140711
  Transmission Date: 20150326
  Serious: Yes (Other)
  Sender: FDA-Public Use
  Company Number: PHHY2014BR085126

PATIENT
  Sex: Female
  Weight: 72 kg

DRUGS (6)
  1. METFORMIN [Concomitant]
     Active Substance: METFORMIN HYDROCHLORIDE
     Indication: BLOOD GLUCOSE ABNORMAL
     Dosage: 2 DF, DAILY
     Dates: start: 2012
  2. ACLASTA [Suspect]
     Active Substance: ZOLEDRONIC ACID
     Indication: OSTEOPOROSIS
     Dosage: UNK UKN, ONCE EVERY YEAR
     Route: 042
     Dates: start: 2012
  3. CALCIUM [Concomitant]
     Active Substance: CALCIUM
     Indication: CHONDROPATHY
     Dosage: 1 DF, DAILY
     Dates: start: 2010
  4. DIAMICRON [Concomitant]
     Active Substance: GLICLAZIDE
     Indication: BLOOD GLUCOSE ABNORMAL
     Dosage: 1 DF, UNK
     Dates: start: 2012
  5. CENTRUM [Concomitant]
     Active Substance: VITAMINS
     Dosage: 1 DF, DAILY
     Dates: start: 2012
  6. ATENOLOL. [Concomitant]
     Active Substance: ATENOLOL
     Indication: HYPERTENSION
     Dosage: 1 DF, DAILY
     Dates: start: 2012

REACTIONS (1)
  - Bone disorder [Unknown]
